FAERS Safety Report 9040984 (Version 1)
Quarter: 2013Q1

REPORT INFORMATION
  Report Type: Spontaneous
  Country: US (occurrence: None)
  Receive Date: 20130123
  Receipt Date: 20130123
  Transmission Date: 20140127
  Serious: Yes (Other)
  Sender: FDA-Public Use
  Company Number: None

PATIENT
  Sex: Female
  Weight: 58.06 kg

DRUGS (2)
  1. FORTEO MFG. ELI LILLY + CO. [Suspect]
     Indication: PARATHYROIDECTOMY
     Dosage: PREFILLED 20MCG/4.2ML DOSE DAILY INJECTION  INJECTION
     Dates: start: 20120807, end: 201212
  2. FORTEO MFG. ELI LILLY + CO. [Suspect]
     Indication: OSTEOPOROSIS
     Dosage: PREFILLED 20MCG/4.2ML DOSE DAILY INJECTION  INJECTION
     Dates: start: 20120807, end: 201212

REACTIONS (10)
  - Headache [None]
  - Glaucoma [None]
  - Memory impairment [None]
  - Constipation [None]
  - Vulvovaginal burning sensation [None]
  - Decreased appetite [None]
  - Nausea [None]
  - Asthenia [None]
  - Muscular weakness [None]
  - Irritability [None]
